FAERS Safety Report 15537228 (Version 4)
Quarter: 2019Q3

REPORT INFORMATION
  Report Type: Spontaneous
  Country: BE (occurrence: BE)
  Receive Date: 20181022
  Receipt Date: 20190704
  Transmission Date: 20191004
  Serious: Yes (Life-Threatening, Other)
  Sender: FDA-Public Use
  Company Number: BE-PFIZER INC-2018427316

PATIENT
  Age: 45 Year
  Sex: Female

DRUGS (2)
  1. INFLIXIMAB HOSPIRA [Suspect]
     Active Substance: INFLIXIMAB
     Dosage: 500 MG, UNK (EVERY 8 WEEKS)
     Route: 042
     Dates: start: 201705, end: 20180830
  2. METHOTREXATE SODIUM. [Suspect]
     Active Substance: METHOTREXATE SODIUM
     Dosage: 15 MG, WEEKLY
     Route: 048
     Dates: start: 201603, end: 20180830

REACTIONS (2)
  - B-cell lymphoma stage IV [Recovering/Resolving]
  - B-cell lymphoma [Recovering/Resolving]

NARRATIVE: CASE EVENT DATE: 20180830
